FAERS Safety Report 10007335 (Version 2)
Quarter: 2014Q1

REPORT INFORMATION
  Report Type: Spontaneous
  Country: CA (occurrence: CA)
  Receive Date: 20140313
  Receipt Date: 20140320
  Transmission Date: 20141002
  Serious: Yes (Disabling)
  Sender: FDA-Public Use
  Company Number: CA-GLAXOSMITHKLINE-A1063782A

PATIENT
  Age: 84 Year
  Sex: Female
  Weight: 56.8 kg

DRUGS (9)
  1. ADVAIR HFA [Suspect]
     Indication: CHRONIC OBSTRUCTIVE PULMONARY DISEASE
     Dosage: 1PUFF TWICE PER DAY
     Route: 055
     Dates: start: 20110831
  2. PREDNISOLONE [Suspect]
     Indication: PRODUCT USED FOR UNKNOWN INDICATION
     Route: 047
  3. ACETAZOLAMIDE [Concomitant]
     Dosage: 125MG TWICE PER DAY
     Route: 048
     Dates: start: 20120709
  4. CORTEF [Concomitant]
     Route: 065
     Dates: start: 20140305
  5. XALATAN [Concomitant]
     Dosage: 1DROP PER DAY
     Route: 047
     Dates: start: 20130625
  6. LYRICA [Concomitant]
     Dosage: 75MG TWICE PER DAY
     Route: 048
     Dates: start: 20131107
  7. VENTOLIN [Concomitant]
     Route: 055
     Dates: start: 20080423
  8. PANTOPRAZOLE MAGNESIUM [Concomitant]
     Dosage: 40MG PER DAY
     Route: 048
     Dates: start: 20131227
  9. APO-ZOPICLONE [Concomitant]
     Route: 048
     Dates: start: 20140219

REACTIONS (7)
  - Addison^s disease [Not Recovered/Not Resolved]
  - Renal failure [Unknown]
  - Adrenal insufficiency [Not Recovered/Not Resolved]
  - Asthenia [Not Recovered/Not Resolved]
  - Fatigue [Not Recovered/Not Resolved]
  - Hypotension [Not Recovered/Not Resolved]
  - Alopecia [Not Recovered/Not Resolved]
